FAERS Safety Report 10554164 (Version 1)
Quarter: 2014Q4

REPORT INFORMATION
  Report Type: Spontaneous
  Country: US (occurrence: None)
  Receive Date: 20141029
  Receipt Date: 20141029
  Transmission Date: 20150529
  Serious: Yes (Hospitalization)
  Sender: FDA-Public Use
  Company Number: None

PATIENT
  Age: 16 Year
  Sex: Male
  Weight: 12.7 kg

DRUGS (4)
  1. PRAVASTATIN [Suspect]
     Active Substance: PRAVASTATIN\PRAVASTATIN SODIUM
     Indication: PROGERIA
     Route: 048
     Dates: start: 20091103, end: 20140520
  2. LOPERAMIDE [Concomitant]
     Active Substance: LOPERAMIDE
  3. LONAFARNIB [Suspect]
     Active Substance: LONAFARNIB
     Indication: PROGERIA
     Route: 048
     Dates: start: 20070816
  4. ERGOCALCIFEROL. [Concomitant]
     Active Substance: ERGOCALCIFEROL

REACTIONS (1)
  - Joint dislocation [None]

NARRATIVE: CASE EVENT DATE: 20140625
